FAERS Safety Report 10440088 (Version 2)
Quarter: 2014Q3

REPORT INFORMATION
  Report Type: Spontaneous
  Country: CA (occurrence: None)
  Receive Date: 20140905
  Receipt Date: 20140923
  Transmission Date: 20150326
  Serious: Yes (Other)
  Sender: FDA-Public Use
  Company Number: CA-016920

PATIENT
  Age: 72 Year
  Sex: Male

DRUGS (4)
  1. FIRMAGON [Suspect]
     Active Substance: DEGARELIX ACETATE
     Indication: PROSTATE CANCER
     Dosage: 80MG 1X SUBCUTANEOUS
     Route: 058
     Dates: start: 20140607
  2. HYDROCHLOROTHIAZIDE. [Concomitant]
     Active Substance: HYDROCHLOROTHIAZIDE
  3. MS CONTIN [Concomitant]
     Active Substance: MORPHINE SULFATE
  4. TYLENOL [Concomitant]
     Active Substance: ACETAMINOPHEN

REACTIONS (6)
  - Bone pain [None]
  - Pain in extremity [None]
  - Urine flow decreased [None]
  - Back pain [None]
  - Mobility decreased [None]
  - Weight bearing difficulty [None]

NARRATIVE: CASE EVENT DATE: 201408
